FAERS Safety Report 20195450 (Version 1)
Quarter: 2021Q4

REPORT INFORMATION
  Report Type: Spontaneous
  Country: US (occurrence: None)
  Receive Date: 20211216
  Receipt Date: 20211216
  Transmission Date: 20220303
  Serious: Yes (Other)
  Sender: FDA-Public Use
  Company Number: None

PATIENT
  Age: 62 Year
  Sex: Female
  Weight: 82.6 kg

DRUGS (1)
  1. CASIRIVIMAB\IMDEVIMAB [Suspect]
     Active Substance: CASIRIVIMAB\IMDEVIMAB
     Indication: COVID-19
     Dosage: OTHER FREQUENCY : ONCE;?
     Route: 041
     Dates: start: 20211119, end: 20211119

REACTIONS (6)
  - Dyspnoea [None]
  - Infusion related reaction [None]
  - Hyperhidrosis [None]
  - Flushing [None]
  - Anxiety [None]
  - Therapy interrupted [None]

NARRATIVE: CASE EVENT DATE: 20211119
